FAERS Safety Report 9894638 (Version 2)
Quarter: 2014Q1

REPORT INFORMATION
  Report Type: Report from Study
  Country: JP (occurrence: JP)
  Receive Date: 20140213
  Receipt Date: 20140310
  Transmission Date: 20141002
  Serious: Yes (Death)
  Sender: FDA-Public Use
  Company Number: JP-ASTRAZENECA-2014SE09787

PATIENT
  Age: 26291 Day
  Sex: Male
  Weight: 75 kg

DRUGS (5)
  1. CRESTOR [Suspect]
     Indication: HYPERCHOLESTEROLAEMIA
     Route: 048
     Dates: start: 20120327, end: 20131022
  2. AMARYL [Suspect]
     Indication: DIABETES MELLITUS
     Route: 048
     Dates: start: 20061122, end: 20131022
  3. ACTOS [Suspect]
     Indication: DIABETES MELLITUS
     Route: 048
     Dates: start: 20060628, end: 20131022
  4. ATELEC [Suspect]
     Indication: HYPERTENSION
     Route: 048
     Dates: start: 20010920, end: 20131022
  5. MEDET [Concomitant]
     Indication: DIABETES MELLITUS
     Route: 048
     Dates: start: 20060628, end: 20131022

REACTIONS (1)
  - Sudden death [Fatal]
